FAERS Safety Report 5130838-7 (Version None)
Quarter: 2006Q4

REPORT INFORMATION
  Report Type: 
  Country: None (occurrence: None)
  Receive Date: 20061017
  Receipt Date: 20061017
  Transmission Date: 20070319
  Serious: Yes (Hospitalization, Other)
  Sender: FDA-Public Use
  Company Number: None

PATIENT
  Age: 56 Year
  Sex: Female

DRUGS (6)
  1. ATACAND [Suspect]
     Indication: HYPERTENSION
     Dates: start: 20060202, end: 20060228
  2. LEVAQUIN [Suspect]
     Indication: BRONCHITIS
     Dosage: 500MG 7 DAYS PO
     Route: 048
     Dates: start: 20060202, end: 20060228
  3. PROTONIX [Concomitant]
  4. PERCOCET [Concomitant]
  5. MAGNESIUM SULFATE [Concomitant]
  6. MAGNESIUM OXIDE [Concomitant]

REACTIONS (3)
  - LIVER FUNCTION TEST ABNORMAL [None]
  - RENAL FAILURE ACUTE [None]
  - RENAL TUBULAR NECROSIS [None]
